FAERS Safety Report 6194724-6 (Version None)
Quarter: 2009Q2

REPORT INFORMATION
  Report Type: 
  Country: None (occurrence: None)
  Receive Date: 20090519
  Receipt Date: 20090507
  Transmission Date: 20091009
  Serious: Yes (Other)
  Sender: FDA-Public Use
  Company Number: BG-PFIZER INC-2009209360

PATIENT
  Age: 24 Year

DRUGS (3)
  1. LYRICA [Suspect]
     Indication: EPILEPSY
     Dosage: 150 MG, 2X/DAY
     Route: 048
     Dates: start: 20090408, end: 20090413
  2. TRILEPTAL [Concomitant]
     Dosage: 300 MG, 2X/DAY
     Route: 048
  3. PHENYTOIN [Concomitant]
     Dosage: 100 MG, 3X/DAY
     Route: 048

REACTIONS (3)
  - AGGRESSION [None]
  - HALLUCINATION [None]
  - PSYCHOTIC DISORDER [None]
